FAERS Safety Report 4502779-7 (Version None)
Quarter: 2004Q4

REPORT INFORMATION
  Report Type: 
  Country: None (occurrence: None)
  Receive Date: 20041116
  Receipt Date: 20041116
  Transmission Date: 20050328
  Serious: Yes (Other)
  Sender: FDA-Public Use
  Company Number: None

PATIENT
  Age: 54 Year
  Sex: Female
  Weight: 71.6683 kg

DRUGS (2)
  1. EFFEXOR [Suspect]
     Dosage: 50 MG DAILY ORAL
     Route: 048
     Dates: start: 20040501, end: 20041031
  2. EFFEXOR XR [Suspect]
     Dosage: 75XR MG DAILY ORAL
     Route: 048

REACTIONS (9)
  - CONDITION AGGRAVATED [None]
  - DEPRESSION [None]
  - DIZZINESS [None]
  - DRUG WITHDRAWAL SYNDROME [None]
  - NAUSEA [None]
  - NERVOUS SYSTEM DISORDER [None]
  - PHOTOSENSITIVITY REACTION [None]
  - SENSORY DISTURBANCE [None]
  - WEIGHT INCREASED [None]
